FAERS Safety Report 13193620 (Version 1)
Quarter: 2017Q1

REPORT INFORMATION
  Report Type: Report from Study
  Country: None (occurrence: US)
  Receive Date: 20170207
  Receipt Date: 20170207
  Transmission Date: 20170428
  Serious: Yes (Hospitalization)
  Sender: FDA-Public Use
  Company Number: US-ABBVIE-16K-163-1640002-00

PATIENT
  Sex: Female
  Weight: 108.05 kg

DRUGS (2)
  1. HUMIRA [Suspect]
     Active Substance: ADALIMUMAB
     Indication: ANKYLOSING SPONDYLITIS
     Route: 058
     Dates: start: 20160524, end: 20160819
  2. HUMIRA [Suspect]
     Active Substance: ADALIMUMAB
     Indication: SACROILIITIS
     Route: 058
     Dates: start: 20160918

REACTIONS (11)
  - Fatigue [Unknown]
  - Musculoskeletal stiffness [Unknown]
  - Back pain [Unknown]
  - Discomfort [Unknown]
  - Ovarian cyst [Recovered/Resolved]
  - Joint range of motion decreased [Unknown]
  - Dysstasia [Unknown]
  - Tenderness [Unknown]
  - Joint swelling [Unknown]
  - Arthralgia [Unknown]
  - Neck pain [Unknown]
